FAERS Safety Report 9111392 (Version 1)
Quarter: 2013Q1

REPORT INFORMATION
  Report Type: Spontaneous
  Country: US (occurrence: US)
  Receive Date: 20130219
  Receipt Date: 20130219
  Transmission Date: 20140127
  Serious: No
  Sender: FDA-Public Use
  Company Number: US-BRISTOL-MYERS SQUIBB COMPANY-17222597

PATIENT
  Age: 56 Year
  Sex: Female

DRUGS (2)
  1. ABATACEPT SUBQ INJECTION 125MG/ML [Suspect]
     Dosage: LAST INJECTION WAS ON 12DEC2012?INF
     Route: 058
     Dates: start: 20121213
  2. ABATACEPT [Suspect]
     Dates: start: 20121212

REACTIONS (2)
  - Urticaria [Recovering/Resolving]
  - Headache [Unknown]
